FAERS Safety Report 4572967-2 (Version None)
Quarter: 2005Q1

REPORT INFORMATION
  Report Type: 
  Country: None (occurrence: None)
  Receive Date: 20050203
  Receipt Date: 20050119
  Transmission Date: 20050727
  Serious: Yes (Life-Threatening)
  Sender: FDA-Public Use
  Company Number: 210823

PATIENT
  Age: 60 Year
  Sex: Female

DRUGS (11)
  1. HERCEPTIN [Suspect]
     Indication: BREAST CANCER METASTATIC
     Dosage: 4MG/KG SINGLE INTRAVENOUS
     Route: 042
     Dates: start: 20041019, end: 20041019
  2. TAXOL [Suspect]
     Indication: BREAST CANCER METASTATIC
     Dosage: 130 MG INTRAVENOUS
     Route: 042
     Dates: start: 20041116, end: 20041217
  3. IMMUNOTHERAPY   (ALLERGENIC EXTRACTS) [Concomitant]
  4. IMODIUM [Concomitant]
  5. DIHYDROCODEINUM           (DIHYDROCODEINE BITARTRATE) [Concomitant]
  6. OPIUM TINCTURE               (OPIUM) [Concomitant]
  7. NAVOBAN (TROPISETRON HYDROCHLORIDE) [Concomitant]
  8. DEXAMETHASONE [Concomitant]
  9. STARLIX [Concomitant]
  10. TAVEGIL            (CLEMASTINE FUMARATE) [Concomitant]
  11. CHEMOTHERAPY NOS (ANTINEOPLASTIC AGENT NOS) [Concomitant]

REACTIONS (7)
  - COUGH [None]
  - DYSPNOEA [None]
  - PEPTIC ULCER PERFORATION [None]
  - PERITONITIS [None]
  - PNEUMONIA [None]
  - UROSEPSIS [None]
  - VOMITING [None]
